FAERS Safety Report 25721544 (Version 1)
Quarter: 2025Q3

REPORT INFORMATION
  Report Type: Spontaneous
  Country: US (occurrence: None)
  Receive Date: 20250822
  Receipt Date: 20250822
  Transmission Date: 20251021
  Serious: Yes (Hospitalization)
  Sender: FDA-CTU
  Company Number: None

PATIENT
  Age: 64 Year
  Sex: Female

DRUGS (11)
  1. ENVARSUS XR [Suspect]
     Active Substance: TACROLIMUS
     Indication: Renal transplant
     Dosage: 2.25 MG DILY OR AS DIRECTED ORAL
     Route: 048
     Dates: start: 20250712
  2. CARVEDILOL 12.5MG TABLETS [Concomitant]
  3. CIPROFLOXACIN [Concomitant]
     Active Substance: CIPROFLOXACIN
  4. MYCOPHENOLIC ACID [Concomitant]
     Active Substance: MYCOPHENOLIC ACID
  5. POTASSIUM CL 20MEQ ER TABLETS [Concomitant]
  6. ONDANSETRON 4MG TABLETS [Concomitant]
  7. DOXAZOSIN MESYLATE [Concomitant]
     Active Substance: DOXAZOSIN MESYLATE
  8. FERROUS SULFATE 325 MG TABS RED [Concomitant]
  9. ENVARSUS XR 1MG TABLETS [Concomitant]
  10. HYDRALAZINE 100MG (HUNDRED MG) TABS [Concomitant]
  11. SODIUM BICARBONATE 10GR(650MG) TABS [Concomitant]

REACTIONS (1)
  - Blood creatinine increased [None]

NARRATIVE: CASE EVENT DATE: 20250819
